FAERS Safety Report 12166826 (Version 2)
Quarter: 2016Q2

REPORT INFORMATION
  Report Type: Report from Study
  Country: US (occurrence: US)
  Receive Date: 20160310
  Receipt Date: 20160523
  Transmission Date: 20160815
  Serious: No
  Sender: FDA-Public Use
  Company Number: PHEH2016US005764

PATIENT
  Age: 41 Year
  Sex: Male

DRUGS (2)
  1. COSENTYX [Suspect]
     Active Substance: SECUKINUMAB
     Indication: PSORIASIS
     Dosage: 300 MG, QW
     Route: 058
     Dates: start: 20160210
  2. COSENTYX [Suspect]
     Active Substance: SECUKINUMAB
     Dosage: 300 MG, QW4
     Route: 065
     Dates: start: 201604

REACTIONS (2)
  - Diarrhoea [Recovered/Resolved]
  - Weight decreased [Unknown]

NARRATIVE: CASE EVENT DATE: 201602
